FAERS Safety Report 11181212 (Version 2)
Quarter: 2015Q2

REPORT INFORMATION
  Report Type: Spontaneous
  Country: JP (occurrence: JP)
  Receive Date: 20150611
  Receipt Date: 20150615
  Transmission Date: 20150821
  Serious: Yes (Other)
  Sender: FDA-Public Use
  Company Number: JP-009507513-1506JPN003859

PATIENT
  Age: 59 Year
  Sex: Female
  Weight: 54 kg

DRUGS (3)
  1. PEGINTRON [Suspect]
     Active Substance: PEGINTERFERON ALFA-2B
     Indication: CHRONIC HEPATITIS C
     Dosage: 600 MICROGRAM, QW
     Route: 058
     Dates: start: 20150406
  2. REBETOL [Suspect]
     Active Substance: RIBAVIRIN
     Indication: CHRONIC HEPATITIS C
     Dosage: 800 MG DAILY
     Route: 048
     Dates: start: 20150406
  3. VANIHEP CAPSULES 150MG [Suspect]
     Active Substance: VANIPREVIR
     Indication: CHRONIC HEPATITIS C
     Dosage: 600 MG ONCE A DAY
     Route: 048

REACTIONS (3)
  - Injection site reaction [Unknown]
  - Rash papular [Unknown]
  - Rash erythematous [Not Recovered/Not Resolved]

NARRATIVE: CASE EVENT DATE: 201505
